FAERS Safety Report 5245653-3 (Version None)
Quarter: 2007Q1

REPORT INFORMATION
  Report Type: 
  Country: None (occurrence: None)
  Receive Date: 20070223
  Receipt Date: 20070213
  Transmission Date: 20070707
  Serious: Yes (Other)
  Sender: FDA-Public Use
  Company Number: US-PFIZER INC-2007012003

PATIENT
  Sex: Female
  Weight: 54.4 kg

DRUGS (2)
  1. CHANTIX [Suspect]
     Indication: SMOKING CESSATION THERAPY
  2. ZOLOFT [Suspect]
     Indication: DEPRESSION

REACTIONS (7)
  - AGITATION [None]
  - ASTHENIA [None]
  - DISORIENTATION [None]
  - DYSKINESIA [None]
  - EUPHORIC MOOD [None]
  - INSOMNIA [None]
  - OSTEOPOROSIS [None]
